FAERS Safety Report 5207202-5 (Version None)
Quarter: 2007Q1

REPORT INFORMATION
  Report Type: 
  Country: None (occurrence: None)
  Receive Date: 20070112
  Receipt Date: 20070109
  Transmission Date: 20070707
  Serious: Yes (Other)
  Sender: FDA-Public Use
  Company Number: GB-GLAXOSMITHKLINE-B0452427A

PATIENT
  Sex: Female
  Weight: 67 kg

DRUGS (2)
  1. ACYCLOVIR [Suspect]
     Dosage: 1G PER DAY
     Route: 048
     Dates: start: 20061030, end: 20061102
  2. CERAZETTE [Concomitant]
     Indication: CONTRACEPTION
     Route: 048
     Dates: start: 20060805

REACTIONS (8)
  - ABDOMINAL PAIN [None]
  - BACK PAIN [None]
  - DIZZINESS [None]
  - DYSPNOEA [None]
  - FATIGUE [None]
  - MALAISE [None]
  - SYNCOPE [None]
  - TREMOR [None]
